FAERS Safety Report 12336178 (Version 1)
Quarter: 2016Q2

REPORT INFORMATION
  Report Type: Spontaneous
  Country: None (occurrence: NO)
  Receive Date: 20160505
  Receipt Date: 20160505
  Transmission Date: 20160815
  Serious: Yes (Disabling)
  Sender: FDA-Public Use
  Company Number: NO-MERCK KGAA-1051457

PATIENT

DRUGS (1)
  1. NOVOTHYROX [Suspect]
     Active Substance: LEVOTHYROXINE SODIUM

REACTIONS (7)
  - Peripheral swelling [None]
  - Dizziness [None]
  - Headache [None]
  - Abdominal pain [None]
  - Drug ineffective [None]
  - Tinnitus [None]
  - Blood thyroid stimulating hormone increased [None]
